FAERS Safety Report 12678535 (Version 6)
Quarter: 2017Q1

REPORT INFORMATION
  Report Type: Spontaneous
  Country: US (occurrence: US)
  Receive Date: 20160823
  Receipt Date: 20170308
  Transmission Date: 20170428
  Serious: Yes (Other)
  Sender: FDA-Public Use
  Company Number: US-PFIZER INC-2016398099

PATIENT
  Age: 52 Year
  Sex: Female
  Weight: 61.69 kg

DRUGS (31)
  1. LYRICA [Suspect]
     Active Substance: PREGABALIN
     Dosage: 100 MG, 3X/DAY
     Route: 048
     Dates: start: 2010
  2. FIORICET [Concomitant]
     Active Substance: ACETAMINOPHEN\BUTALBITAL\CAFFEINE
     Indication: HEADACHE
     Dosage: [BUTALBITAL 50 MG]/[CAFFEINE 40 MG]/[PARACETAMOL 325 MG] ONE TABLET THREE TIMES A DAY AS NEEDED
     Dates: start: 2011, end: 20160822
  3. TIZANIDINE. [Concomitant]
     Active Substance: TIZANIDINE
     Dosage: UNK
  4. LEVOTHYROXINE. [Concomitant]
     Active Substance: LEVOTHYROXINE
     Indication: THYROID DISORDER
     Dosage: 100MCG ONCE A DAY
  5. ESTRADIOL. [Concomitant]
     Active Substance: ESTRADIOL
     Indication: HORMONE THERAPY
     Dosage: 2 MG, 1X/DAY
     Dates: start: 2005
  6. ZONISAMIDE. [Concomitant]
     Active Substance: ZONISAMIDE
     Indication: MIGRAINE
     Dosage: 100 MG, 1X/DAY (ONE TABLET IN THE MORNING)
  7. LYRICA [Suspect]
     Active Substance: PREGABALIN
     Dosage: 150 MG, 3X/DAY
     Route: 048
     Dates: start: 20160822
  8. LYRICA [Suspect]
     Active Substance: PREGABALIN
     Dosage: 150 MG, 3X/DAY
     Dates: start: 201609, end: 201610
  9. TIZANIDINE. [Concomitant]
     Active Substance: TIZANIDINE
     Indication: INFLAMMATION
     Dosage: 4 MG, 2X/DAY
     Dates: start: 2015, end: 20160821
  10. XANAX [Concomitant]
     Active Substance: ALPRAZOLAM
     Indication: ANXIETY
     Dosage: 1 MG, AS NEEDED
  11. LYRICA [Suspect]
     Active Substance: PREGABALIN
     Indication: SEIZURE
     Dosage: 175 MG, UNK
     Dates: start: 2008
  12. LYRICA [Suspect]
     Active Substance: PREGABALIN
     Indication: MIGRAINE
     Dosage: UNK
     Dates: start: 2009
  13. LEVOTHYROXINE. [Concomitant]
     Active Substance: LEVOTHYROXINE
     Dosage: 2 MG, 1X/DAY
  14. LINZESS [Concomitant]
     Active Substance: LINACLOTIDE
     Indication: GASTRITIS
  15. OXCARBAZEPINE. [Concomitant]
     Active Substance: OXCARBAZEPINE
     Indication: ANXIETY
     Dosage: 150 MG, 2X/DAY
     Dates: start: 20160810, end: 201610
  16. LISINOPRIL. [Concomitant]
     Active Substance: LISINOPRIL
     Dosage: UNK
  17. TRAZODONE [Concomitant]
     Active Substance: TRAZODONE HYDROCHLORIDE
     Indication: BACK PAIN
     Dosage: 4 MG, 3X/DAY
  18. LINZESS [Concomitant]
     Active Substance: LINACLOTIDE
     Indication: GASTRIC DISORDER
     Dosage: 145MCG ONCE A DAY
     Dates: start: 20160725
  19. ESTRADIOL. [Concomitant]
     Active Substance: ESTRADIOL
     Dosage: 0.88 MG, UNK
  20. PERCOCET [Concomitant]
     Active Substance: ACETAMINOPHEN\OXYCODONE HYDROCHLORIDE
     Indication: PAIN
     Dosage: 7.5 MG, AS NEEDED
  21. ZONISAMIDE. [Concomitant]
     Active Substance: ZONISAMIDE
     Indication: SEIZURE
  22. QUETIAPINE FUMARATE. [Concomitant]
     Active Substance: QUETIAPINE FUMARATE
     Indication: SLEEP DISORDER
     Dosage: 200 MG, 1X/DAY (ONCE AT NIGHT)
  23. LYRICA [Suspect]
     Active Substance: PREGABALIN
     Indication: FIBROMYALGIA
     Dosage: 100 MG, 3X/DAY
     Dates: start: 2007
  24. ESTRADIOL. [Concomitant]
     Active Substance: ESTRADIOL
     Dosage: 1 MG, 1X/DAY
     Dates: start: 2005
  25. NUCYNTA [Concomitant]
     Active Substance: TAPENTADOL HYDROCHLORIDE
     Indication: PAIN
     Dosage: 150 MG, 2X/DAY
  26. BUSPIRONE HCL [Concomitant]
     Active Substance: BUSPIRONE HYDROCHLORIDE
     Indication: HYPERTENSION
     Dosage: 5MG TO TAKE TWICE A DAY
     Dates: start: 20160810
  27. BUSPAR [Concomitant]
     Active Substance: BUSPIRONE HYDROCHLORIDE
     Dosage: 10 MG, 3X/DAY
  28. OXCARBAZEPINE. [Concomitant]
     Active Substance: OXCARBAZEPINE
     Indication: SEIZURE
  29. PENNSAID [Concomitant]
     Active Substance: DICLOFENAC SODIUM
     Dosage: UNK
  30. OXCARBAZEPINE. [Concomitant]
     Active Substance: OXCARBAZEPINE
     Indication: MIGRAINE
     Dosage: UNK UNK, 2X/DAY (HALF A PILL TWICE DAILY)
  31. RANITIDINE. [Concomitant]
     Active Substance: RANITIDINE
     Indication: GASTRITIS
     Dosage: 300 MG, 1X/DAY
     Dates: start: 20160808

REACTIONS (7)
  - Gastritis [Not Recovered/Not Resolved]
  - Hypertension [Recovered/Resolved]
  - Foot fracture [Unknown]
  - Loss of consciousness [Recovered/Resolved]
  - Seizure [Unknown]
  - Anxiety [Not Recovered/Not Resolved]
  - Intentional product misuse [Unknown]

NARRATIVE: CASE EVENT DATE: 201608
